FAERS Safety Report 13156491 (Version 2)
Quarter: 2017Q2

REPORT INFORMATION
  Report Type: Spontaneous
  Country: JP (occurrence: JP)
  Receive Date: 20170126
  Receipt Date: 20170420
  Transmission Date: 20170830
  Serious: Yes (Hospitalization, Disabling, Other)
  Sender: FDA-Public Use
  Company Number: JP-PFIZER INC-2017031861

PATIENT
  Age: 79 Year
  Sex: Male
  Weight: 48 kg

DRUGS (8)
  1. CINAL [Concomitant]
     Active Substance: ASCORBIC ACID\CALCIUM PANTOTHENATE
     Route: 048
  2. PREDONINE [Concomitant]
     Active Substance: PREDNISOLONE
     Dosage: 5 MG, UNK
     Route: 048
  3. MAGMITT [Concomitant]
     Active Substance: MAGNESIUM OXIDE
     Dosage: 250 MG, UNK
     Route: 048
  4. RHEUMATREX [Suspect]
     Active Substance: METHOTREXATE SODIUM
     Indication: RHEUMATOID ARTHRITIS
     Dosage: 2 MG, UNK
     Route: 048
  5. AZELNIDIPINE [Concomitant]
     Active Substance: AZELNIDIPINE
     Dosage: 8 MG, UNK
     Route: 048
  6. FOLIAMIN [Concomitant]
     Active Substance: FOLIC ACID
     Dosage: 5 MG, UNK
     Route: 048
  7. SODIUM FERRIC CITRATE [Concomitant]
     Active Substance: FERRIC SODIUM CITRATE
     Dosage: 50 MG, UNK
     Route: 048
  8. CELECOX [Concomitant]
     Active Substance: CELECOXIB
     Dosage: 10 MG, UNK
     Route: 048

REACTIONS (2)
  - Exposed bone in jaw [Not Recovered/Not Resolved]
  - Osteomyelitis [Not Recovered/Not Resolved]

NARRATIVE: CASE EVENT DATE: 201606
